FAERS Safety Report 8958513 (Version 1)
Quarter: 2012Q4

REPORT INFORMATION
  Report Type: Spontaneous
  Country: US (occurrence: None)
  Receive Date: 20121205
  Receipt Date: 20121205
  Transmission Date: 20130627
  Serious: No
  Sender: FDA-Public Use
  Company Number: None

PATIENT
  Age: 48 Year
  Sex: Male
  Weight: 75.75 kg

DRUGS (1)
  1. GENERIC ADDERALL XR [Suspect]
     Indication: ADD
     Dosage: 20 mg Daily oral
     Route: 048
     Dates: start: 20111026, end: 20121126

REACTIONS (3)
  - Anxiety [None]
  - Pollakiuria [None]
  - Nervous system disorder [None]
